FAERS Safety Report 4534184-1 (Version None)
Quarter: 2004Q4

REPORT INFORMATION
  Report Type: 
  Country: None (occurrence: None)
  Receive Date: 20041221
  Receipt Date: 20041221
  Transmission Date: 20050328
  Serious: Yes (Hospitalization)
  Sender: FDA-Public Use
  Company Number: None

PATIENT
  Age: 64 Year
  Sex: Female
  Weight: 63.9572 kg

DRUGS (2)
  1. CETUXIMAB  100MG/ 5CC  IMCLONE [Suspect]
     Indication: COLORECTAL CANCER METASTATIC
     Dates: start: 20041116, end: 20041116
  2. OXALIPLATIN   85MG/M2  SANOFI-SYNTHELABO [Suspect]
     Indication: COLORECTAL CANCER METASTATIC
     Dates: start: 20041116, end: 20041116

REACTIONS (3)
  - ABDOMINAL MASS [None]
  - HAEMATEMESIS [None]
  - HAEMATOMA [None]
